FAERS Safety Report 8522320 (Version 3)
Quarter: 2014Q1

REPORT INFORMATION
  Report Type: Spontaneous
  Country: US (occurrence: US)
  Receive Date: 20120419
  Receipt Date: 20140319
  Transmission Date: 20141002
  Serious: Yes (Other)
  Sender: FDA-Public Use
  Company Number: US-ROCHE-784221

PATIENT
  Age: 28 Year
  Sex: Female
  Weight: 81.72 kg

DRUGS (4)
  1. ACCUTANE [Suspect]
     Indication: ACNE
     Route: 065
     Dates: start: 199102, end: 199104
  2. ACCUTANE [Suspect]
     Route: 065
     Dates: start: 199402, end: 199405
  3. BACTRIM [Concomitant]
  4. CYCLOCORT [Concomitant]

REACTIONS (6)
  - Colitis ulcerative [Unknown]
  - Inflammatory bowel disease [Unknown]
  - Stress [Unknown]
  - Small intestinal obstruction [Unknown]
  - Depression [Unknown]
  - Muscle spasms [Unknown]
